FAERS Safety Report 22194512 (Version 3)
Quarter: 2024Q4

REPORT INFORMATION
  Report Type: Report from Study
  Country: US (occurrence: US)
  Receive Date: 20230411
  Receipt Date: 20241223
  Transmission Date: 20250115
  Serious: Yes (Hospitalization)
  Sender: PFIZER
  Company Number: US-GBT-021495

PATIENT
  Age: 15 Year
  Sex: Female

DRUGS (14)
  1. VOXELOTOR [Suspect]
     Active Substance: VOXELOTOR
     Indication: Anaemia
     Dosage: 1500 MG, 1X/DAY
     Dates: start: 20210820
  2. VOXELOTOR [Suspect]
     Active Substance: VOXELOTOR
     Indication: Sickle cell disease
  3. VITAMIN D3 [Concomitant]
     Active Substance: CHOLECALCIFEROL
     Indication: Vitamin D deficiency
     Dosage: 50 MCG (2,000 UNIT) TABLET;DOSE: 2000.0 U
     Route: 048
     Dates: start: 20191219
  4. MS CONTIN [Concomitant]
     Active Substance: MORPHINE SULFATE
     Dosage: 15 MG, 2X/DAY (EXTENDED RELEASE)
     Route: 048
     Dates: start: 20190311
  5. LORCET [Concomitant]
     Active Substance: ACETAMINOPHEN\HYDROCODONE BITARTRATE
     Indication: Sickle cell disease
     Dosage: [HYDROCODONE BITARTRATE 5MG][PARACETAMOL 325 MG] TABLET, EVERY 6 HRS, AS NEEDED
     Route: 048
     Dates: start: 20180816
  6. MOTRIN [Concomitant]
     Active Substance: IBUPROFEN
     Indication: Sickle cell disease
     Dosage: 400 MG, 6 TIMES EVERY HOUR
     Route: 048
     Dates: start: 20200504, end: 20210520
  7. FLEXERIL [Concomitant]
     Active Substance: CYCLOBENZAPRINE HYDROCHLORIDE
     Indication: Sickle cell disease
     Dosage: 5 MG, 3X/DAY
     Route: 048
     Dates: start: 20200809
  8. FOLVITE [Concomitant]
     Active Substance: FOLIC ACID
     Indication: Sickle cell disease
     Dosage: 1 MG, 1X/DAY
     Route: 048
     Dates: start: 20120414
  9. CRIZANLIZUMAB TMCA [Concomitant]
     Indication: Sickle cell disease
     Dosage: 5 MG/KG, MONTHLY
     Route: 042
     Dates: start: 20190416, end: 20210421
  10. TORADOL [Concomitant]
     Active Substance: KETOROLAC TROMETHAMINE
     Indication: Sickle cell disease
     Dosage: 15MG
     Route: 042
     Dates: start: 20201202, end: 20201202
  11. KETOROLAC [Concomitant]
     Active Substance: KETOROLAC TROMETHAMINE
     Dosage: 30MG/ML
  12. ROXICODONE [Concomitant]
     Active Substance: OXYCODONE HYDROCHLORIDE
     Dosage: 10MG
  13. SARS-COV-2 VACCINE [Concomitant]
     Dosage: 30 MCG/0.3ML (12+YR)
  14. CEFTRIAXONE SODIUM [Concomitant]
     Active Substance: CEFTRIAXONE SODIUM
     Dosage: UNK

REACTIONS (1)
  - Tooth impacted [Recovered/Resolved]
